FAERS Safety Report 7683063-X (Version None)
Quarter: 2011Q3

REPORT INFORMATION
  Report Type: 
  Country: None (occurrence: None)
  Receive Date: 20110812
  Receipt Date: 20110812
  Transmission Date: 20111222
  Serious: Yes (Hospitalization)
  Sender: FDA-Public Use
  Company Number: None

PATIENT
  Age: 78 Year
  Sex: Female
  Weight: 69.4003 kg

DRUGS (5)
  1. ANSID [Suspect]
  2. LASIX [Suspect]
  3. PLAQUENIL [Suspect]
  4. HYDROCODONE BITARTRATE + ACETAMINOPHEN [Suspect]
     Dosage: 1/2 TO 1 BY MOUTH EVERY 4 HOURS AS NEEDED
     Route: 048
  5. PREDNISONE [Suspect]

REACTIONS (1)
  - NODULE [None]
